FAERS Safety Report 4446431-5 (Version None)
Quarter: 2004Q3

REPORT INFORMATION
  Report Type: 
  Country: None (occurrence: None)
  Receive Date: 20040907
  Receipt Date: 20040824
  Transmission Date: 20050211
  Serious: Yes (Other)
  Sender: FDA-Public Use
  Company Number: 2004059000

PATIENT
  Sex: Female

DRUGS (3)
  1. RELPAX [Suspect]
     Indication: MIGRAINE
  2. NARATRIPTAN HYDROCHLORIDE [Concomitant]
  3. SUMATRIPTAN SUCCINATE [Concomitant]

REACTIONS (1)
  - CORNEAL DISORDER [None]
